FAERS Safety Report 9747721 (Version 1)
Quarter: 2013Q4

REPORT INFORMATION
  Report Type: Spontaneous
  Country: US (occurrence: US)
  Receive Date: 20131212
  Receipt Date: 20131212
  Transmission Date: 20140711
  Serious: Yes (Other)
  Sender: FDA-Public Use
  Company Number: US-TEVA-384445USA

PATIENT
  Age: 30 Year
  Sex: Female
  Weight: 62.2 kg

DRUGS (2)
  1. PARAGARD 380A [Suspect]
     Route: 015
     Dates: start: 2010
  2. HYDROCODONE [Concomitant]

REACTIONS (5)
  - Embedded device [Not Recovered/Not Resolved]
  - Pregnancy with contraceptive device [Recovered/Resolved]
  - Drug ineffective [Recovered/Resolved]
  - Medical device complication [Not Recovered/Not Resolved]
  - Live birth [Unknown]
